FAERS Safety Report 17536666 (Version 1)
Quarter: 2020Q1

REPORT INFORMATION
  Report Type: Report from Study
  Country: GB (occurrence: GB)
  Receive Date: 20200313
  Receipt Date: 20200313
  Transmission Date: 20200409
  Serious: No
  Sender: FDA-Public Use
  Company Number: GB-ROCHE-2565214

PATIENT
  Sex: Female

DRUGS (1)
  1. OCREVUS [Suspect]
     Active Substance: OCRELIZUMAB
     Indication: RELAPSING-REMITTING MULTIPLE SCLEROSIS
     Dosage: CYCLE 1 DOSE 2 INFUSION MADE UP IN ASEPTIC DEPART?06/MAR/2020
     Route: 041
     Dates: start: 20200214

REACTIONS (5)
  - Feeling hot [Recovered/Resolved]
  - Candida infection [Recovered/Resolved]
  - Fatigue [Unknown]
  - Insomnia [Unknown]
  - Headache [Unknown]
